FAERS Safety Report 20787212 (Version 1)
Quarter: 2022Q2

REPORT INFORMATION
  Report Type: Spontaneous
  Country: US (occurrence: US)
  Receive Date: 20220505
  Receipt Date: 20220505
  Transmission Date: 20220721
  Serious: No
  Sender: FDA-Public Use
  Company Number: US-SANOFI-01082560

PATIENT
  Age: 68 Year
  Sex: Male

DRUGS (2)
  1. SOLIQUA 100/33 [Suspect]
     Active Substance: INSULIN GLARGINE\LIXISENATIDE
     Indication: Type 2 diabetes mellitus
     Dosage: 20 IU, TID
  2. NOVOLOG [Concomitant]
     Active Substance: INSULIN ASPART
     Dosage: 10 IU, TID

REACTIONS (1)
  - Inappropriate schedule of product administration [Unknown]
